FAERS Safety Report 5509835-5 (Version None)
Quarter: 2007Q4

REPORT INFORMATION
  Report Type: 
  Country: None (occurrence: None)
  Receive Date: 20071026
  Receipt Date: 20070817
  Transmission Date: 20080405
  Serious: Yes (Hospitalization)
  Sender: FDA-Public Use
  Company Number: CLOF-10646

PATIENT
  Age: 72 Year
  Sex: Female

DRUGS (8)
  1. CLOFARABINE. MFR: GENZYME [Suspect]
     Indication: ACUTE MYELOID LEUKAEMIA
     Dates: end: 20070707
  2. CYTARABINE [Suspect]
     Indication: ACUTE MYELOID LEUKAEMIA
     Dosage: 100 MG IV
     Route: 042
     Dates: start: 20070808, end: 20070813
  3. DARVOCET [Concomitant]
  4. LEVAQUIN [Concomitant]
  5. MAGNESIUM [Concomitant]
  6. MICRO-K [Concomitant]
  7. PROTONIX [Concomitant]
  8. VALTREX [Concomitant]

REACTIONS (1)
  - PYREXIA [None]
